FAERS Safety Report 6918546-0 (Version None)
Quarter: 2010Q3

REPORT INFORMATION
  Report Type: 
  Country: None (occurrence: None)
  Receive Date: 20100811
  Receipt Date: 20100809
  Transmission Date: 20110219
  Serious: Yes (Other)
  Sender: FDA-Public Use
  Company Number: US-ASTRAZENECA-2007UW25158

PATIENT
  Age: 477 Month
  Sex: Male
  Weight: 125.6 kg

DRUGS (22)
  1. SEROQUEL [Suspect]
     Indication: ANXIETY
     Dosage: 100-600 MG
     Route: 048
     Dates: start: 20050401, end: 20061201
  2. SEROQUEL [Suspect]
     Indication: DEPRESSION
     Dosage: 100-600 MG
     Route: 048
     Dates: start: 20050401, end: 20061201
  3. SEROQUEL [Suspect]
     Indication: BIPOLAR DISORDER
     Dosage: 100-600 MG
     Route: 048
     Dates: start: 20050401, end: 20061201
  4. SEROQUEL [Suspect]
     Route: 048
     Dates: start: 20050720
  5. SEROQUEL [Suspect]
     Route: 048
     Dates: start: 20050720
  6. SEROQUEL [Suspect]
     Route: 048
     Dates: start: 20050720
  7. SEROQUEL [Suspect]
     Route: 048
     Dates: start: 20071004
  8. SEROQUEL [Suspect]
     Route: 048
     Dates: start: 20071004
  9. SEROQUEL [Suspect]
     Route: 048
     Dates: start: 20071004
  10. LASIX [Concomitant]
     Route: 048
     Dates: start: 20051019
  11. TOPROL-XL [Concomitant]
     Dates: start: 20051221
  12. VICODIN [Concomitant]
     Dosage: 5/500 MG EVERY SIX HOURLY, AS REQUIRED
     Dates: start: 20051221
  13. ZOCOR [Concomitant]
     Dosage: 10 MG AFTER EVENING MEAL
     Dates: start: 20050418
  14. ASPIRIN [Concomitant]
     Dates: start: 20050411
  15. REMERON [Concomitant]
     Dates: start: 20050411
  16. LEXAPRO [Concomitant]
     Route: 048
     Dates: start: 20050404
  17. AMBIEN [Concomitant]
     Indication: INSOMNIA
     Route: 048
     Dates: start: 20050406
  18. ACETAMINOPHEN [Concomitant]
     Dosage: 325 MG-650 MG EVERY NIGHT
     Route: 048
     Dates: start: 20050418
  19. ATIVAN [Concomitant]
     Route: 048
     Dates: start: 20050405
  20. NORVASC [Concomitant]
     Dosage: 5 MG ONCE DAILY
     Route: 048
     Dates: start: 20050405
  21. NAPROXEN [Concomitant]
     Dates: start: 20071004
  22. HYDRO/APAP [Concomitant]
     Dosage: 5/500
     Dates: start: 20071004

REACTIONS (8)
  - ADVERSE DRUG REACTION [None]
  - BLOOD CHOLESTEROL INCREASED [None]
  - BLOOD TRIGLYCERIDES INCREASED [None]
  - CHRONIC OBSTRUCTIVE PULMONARY DISEASE [None]
  - DIABETIC COMPLICATION [None]
  - HYPERLIPIDAEMIA [None]
  - POLYNEUROPATHY [None]
  - TYPE 2 DIABETES MELLITUS [None]
